FAERS Safety Report 17828021 (Version 1)
Quarter: 2020Q2

REPORT INFORMATION
  Report Type: Spontaneous
  Country: JP (occurrence: JP)
  Receive Date: 20200527
  Receipt Date: 20200527
  Transmission Date: 20200714
  Serious: Yes (Death, Other)
  Sender: FDA-Public Use
  Company Number: NVSC2020JP093420

PATIENT
  Age: 57 Year
  Sex: Female

DRUGS (2)
  1. MEKINIST [Suspect]
     Active Substance: TRAMETINIB DIMETHYL SULFOXIDE
     Indication: METAPLASTIC BREAST CARCINOMA
     Dosage: 2 MG, QD
     Route: 048
  2. TAFINLAR [Suspect]
     Active Substance: DABRAFENIB MESYLATE
     Indication: METAPLASTIC BREAST CARCINOMA
     Dosage: 150 MG, BID
     Route: 048

REACTIONS (4)
  - Product use in unapproved indication [Unknown]
  - Pyrexia [Unknown]
  - Metaplastic breast carcinoma [Fatal]
  - Malignant neoplasm progression [Fatal]
